FAERS Safety Report 9656890 (Version 2)
Quarter: 2013Q4

REPORT INFORMATION
  Report Type: Report from Study
  Country: DE (occurrence: DE)
  Receive Date: 20131030
  Receipt Date: 20131111
  Transmission Date: 20140711
  Serious: Yes (Hospitalization)
  Sender: FDA-Public Use
  Company Number: DE-ABBVIE-13P-062-1161612-00

PATIENT
  Age: 41 Year
  Sex: Female

DRUGS (2)
  1. HUMIRA [Suspect]
     Indication: CROHN^S DISEASE
     Route: 058
     Dates: start: 20130624, end: 201310
  2. HUMIRA [Suspect]
     Dates: start: 20131104

REACTIONS (2)
  - Intervertebral disc protrusion [Recovered/Resolved]
  - Crohn^s disease [Recovered/Resolved]
